FAERS Safety Report 19198301 (Version 1)
Quarter: 2021Q2

REPORT INFORMATION
  Report Type: Spontaneous
  Country: US (occurrence: US)
  Receive Date: 20210430
  Receipt Date: 20210430
  Transmission Date: 20210717
  Serious: No
  Sender: FDA-Public Use
  Company Number: US-ASTRAZENECA-2021A268069

PATIENT
  Sex: Female
  Weight: 63.5 kg

DRUGS (3)
  1. SYMBICORT [Suspect]
     Active Substance: BUDESONIDE\FORMOTEROL FUMARATE DIHYDRATE
     Indication: ASTHMA
     Dosage: 160/4.5MCG 2 PUFFS DAILY AT NIGHT
     Route: 055
  2. SINGULAIR [Concomitant]
     Active Substance: MONTELUKAST SODIUM
  3. SYMBICORT [Suspect]
     Active Substance: BUDESONIDE\FORMOTEROL FUMARATE DIHYDRATE
     Indication: ASTHMA
     Dosage: 160/4.5MCG 2 PUFFS DAILY AT NIGHT
     Route: 055

REACTIONS (9)
  - Dysgeusia [Unknown]
  - Dysphonia [Unknown]
  - Device delivery system issue [Unknown]
  - Insurance issue [Unknown]
  - Hypersensitivity [Unknown]
  - Neuropathy peripheral [Recovering/Resolving]
  - Device issue [Unknown]
  - Device use issue [Unknown]
  - Product dose omission issue [Unknown]
